FAERS Safety Report 5851363-1 (Version None)
Quarter: 2008Q3

REPORT INFORMATION
  Report Type: 
  Country: None (occurrence: None)
  Receive Date: 20080820
  Receipt Date: 20080809
  Transmission Date: 20090109
  Serious: Yes (Other)
  Sender: FDA-Public Use
  Company Number: MX-MERCK-0808USA03463

PATIENT
  Age: 50 Year
  Sex: Male

DRUGS (7)
  1. ISENTRESS [Suspect]
     Route: 048
  2. RITONAVIR AND TIPRANAVIR [Interacting]
     Route: 065
  3. EMTRICITABINE AND TENOFOVIR DISOPROXIL FUMARATE [Concomitant]
     Route: 065
  4. TENOFOVIR [Concomitant]
     Route: 065
  5. ZIDOVUDINE [Concomitant]
     Route: 065
  6. LAMIVUDINE [Concomitant]
     Route: 065
  7. ABACAVIR SULFATE [Concomitant]
     Route: 065

REACTIONS (4)
  - ALANINE AMINOTRANSFERASE INCREASED [None]
  - ASPARTATE AMINOTRANSFERASE INCREASED [None]
  - CYTOLYTIC HEPATITIS [None]
  - DRUG INTERACTION [None]
